FAERS Safety Report 13064182 (Version 1)
Quarter: 2016Q4

REPORT INFORMATION
  Report Type: Spontaneous
  Country: US (occurrence: US)
  Receive Date: 20161227
  Receipt Date: 20161227
  Transmission Date: 20170207
  Serious: No
  Sender: FDA-Public Use
  Company Number: US-BAYER-2016-244176

PATIENT
  Age: 82 Year
  Sex: Male
  Weight: 109 kg

DRUGS (6)
  1. ALLOPURINOL. [Concomitant]
     Active Substance: ALLOPURINOL
  2. ATENOLOL. [Concomitant]
     Active Substance: ATENOLOL
  3. MIRALAX [Suspect]
     Active Substance: POLYETHYLENE GLYCOL 3350
     Indication: GASTROINTESTINAL DISORDER
     Route: 048
     Dates: start: 2016, end: 201612
  4. CHOLESTEROL [Concomitant]
     Active Substance: CHOLESTEROL
  5. BAYER ASPIRIN [Concomitant]
     Active Substance: ASPIRIN
     Indication: PROPHYLAXIS
     Route: 065
  6. CENTRUM SILVER [Concomitant]
     Active Substance: MINERALS\VITAMINS

REACTIONS (1)
  - Product use issue [Unknown]

NARRATIVE: CASE EVENT DATE: 2016
